FAERS Safety Report 14950768 (Version 3)
Quarter: 2018Q4

REPORT INFORMATION
  Report Type: Spontaneous
  Country: IT (occurrence: IT)
  Receive Date: 20180530
  Receipt Date: 20181226
  Transmission Date: 20190204
  Serious: Yes (Other)
  Sender: FDA-Public Use
  Company Number: IT-ACCORD-060834

PATIENT
  Age: 66 Year
  Sex: Male
  Weight: 82 kg

DRUGS (4)
  1. FLUOROURACIL. [Suspect]
     Active Substance: FLUOROURACIL
     Indication: ADENOCARCINOMA OF COLON
     Route: 042
     Dates: start: 20170414
  2. IRINOTECAN [Suspect]
     Active Substance: IRINOTECAN
     Indication: ADENOCARCINOMA OF COLON
     Route: 042
     Dates: start: 20170414
  3. PANITUMUMAB [Suspect]
     Active Substance: PANITUMUMAB
     Indication: ADENOCARCINOMA OF COLON
     Route: 042
     Dates: start: 20170414
  4. LEVOFOLINIC ACID [Concomitant]
     Active Substance: LEVOLEUCOVORIN
     Indication: NEOPLASM PROGRESSION
     Route: 042
     Dates: start: 20170414

REACTIONS (6)
  - Asthenia [Recovering/Resolving]
  - Paronychia [Not Recovered/Not Resolved]
  - Diarrhoea [Recovering/Resolving]
  - Vomiting [Recovering/Resolving]
  - Nausea [Recovering/Resolving]
  - Rash [Recovering/Resolving]

NARRATIVE: CASE EVENT DATE: 20170415
